FAERS Safety Report 9163206 (Version 1)
Quarter: 2013Q1

REPORT INFORMATION
  Report Type: Spontaneous
  Country: US (occurrence: US)
  Receive Date: 20130314
  Receipt Date: 20130314
  Transmission Date: 20140127
  Serious: Yes (Hospitalization, Other)
  Sender: FDA-Public Use
  Company Number: US-GLAXOSMITHKLINE-A1015143A

PATIENT
  Sex: Female

DRUGS (3)
  1. POTIGA [Suspect]
     Indication: EPILEPSY
     Route: 048
  2. KEPPRA [Suspect]
  3. LYRICA [Concomitant]

REACTIONS (4)
  - Hypotension [Unknown]
  - Syncope [Unknown]
  - Blood pressure decreased [Unknown]
  - Depression [Unknown]
